FAERS Safety Report 20713323 (Version 2)
Quarter: 2022Q2

REPORT INFORMATION
  Report Type: Report from Study
  Country: DO (occurrence: DO)
  Receive Date: 20220415
  Receipt Date: 20220531
  Transmission Date: 20220721
  Serious: Yes (Other)
  Sender: FDA-Public Use
  Company Number: DO-NOVARTISPH-NVSC2022DO084827

PATIENT
  Sex: Female

DRUGS (3)
  1. METFORMIN HYDROCHLORIDE\VILDAGLIPTIN [Suspect]
     Active Substance: METFORMIN HYDROCHLORIDE\VILDAGLIPTIN
     Indication: Diabetes mellitus
     Dosage: 50/500 MG, QD (IN THE MORNING) START DATE WAS APPROXIMATELY 28 YEARS AGO.
     Route: 065
  2. CLOPIDOGREL [Suspect]
     Active Substance: CLOPIDOGREL BISULFATE
     Indication: Anti-platelet antibody
     Dosage: 75 MG
     Route: 065
  3. EDUCIL [Concomitant]
     Indication: Blood cholesterol
     Dosage: 20 MG
     Route: 065

REACTIONS (3)
  - Dementia Alzheimer^s type [Unknown]
  - Hypertension [Not Recovered/Not Resolved]
  - Headache [Unknown]
